FAERS Safety Report 23330492 (Version 1)
Quarter: 2023Q4

REPORT INFORMATION
  Report Type: Spontaneous
  Country: CN (occurrence: CN)
  Receive Date: 20231222
  Receipt Date: 20231222
  Transmission Date: 20240110
  Serious: Yes (Other)
  Sender: FDA-Public Use
  Company Number: CN-002147023-NVSC2023CN266501

PATIENT
  Age: 51 Year
  Sex: Male

DRUGS (2)
  1. RANIBIZUMAB [Suspect]
     Active Substance: RANIBIZUMAB
     Indication: Optic ischaemic neuropathy
     Route: 047
     Dates: start: 20230707, end: 20230712
  2. RANIBIZUMAB [Suspect]
     Active Substance: RANIBIZUMAB
     Route: 042

REACTIONS (1)
  - Xerophthalmia [Recovering/Resolving]

NARRATIVE: CASE EVENT DATE: 20230708
